FAERS Safety Report 7680538-4 (Version None)
Quarter: 2011Q3

REPORT INFORMATION
  Report Type: 
  Country: None (occurrence: None)
  Receive Date: 20110812
  Receipt Date: 20110810
  Transmission Date: 20111222
  Serious: Yes (Hospitalization)
  Sender: FDA-Public Use
  Company Number: DE-PFIZER INC-2011184240

PATIENT
  Age: 73 Year
  Sex: Male
  Weight: 75 kg

DRUGS (2)
  1. ANIDULAFUNGIN [Suspect]
     Dosage: 100 MG, 1X/DAY
     Route: 042
     Dates: start: 20100716, end: 20100728
  2. ANIDULAFUNGIN [Suspect]
     Indication: SYSTEMIC CANDIDA
     Dosage: 200 MG, 1X/DAY
     Route: 042
     Dates: start: 20100715, end: 20100715

REACTIONS (2)
  - CANDIDA PNEUMONIA [None]
  - PNEUMONIA BACTERIAL [None]
